FAERS Safety Report 17278489 (Version 1)
Quarter: 2020Q1

REPORT INFORMATION
  Report Type: Spontaneous
  Country: IN (occurrence: IN)
  Receive Date: 20200116
  Receipt Date: 20200116
  Transmission Date: 20200409
  Serious: Yes (Life-Threatening, Hospitalization, Other)
  Sender: FDA-Public Use
  Company Number: IN-PFIZER INC-2019560411

PATIENT
  Age: 6 Month
  Sex: Female
  Weight: 6.5 kg

DRUGS (9)
  1. HALOTHANE. [Concomitant]
     Active Substance: HALOTHANE
     Indication: MAINTENANCE OF ANAESTHESIA
     Dosage: UNK (HALOTHANE 0.4-1% IN 50% N2O IN OXYGEN)
  2. HYDROCORTISONE. [Suspect]
     Active Substance: HYDROCORTISONE
     Dosage: UNK
  3. OXYGEN. [Suspect]
     Active Substance: OXYGEN
     Dosage: UNK
  4. TRAMADOL. [Concomitant]
     Active Substance: TRAMADOL
     Indication: PREMEDICATION
     Dosage: 1 MG/KG, UNK
     Route: 042
  5. GLYCOPYRROLATE [GLYCOPYRRONIUM] [Concomitant]
     Active Substance: GLYCOPYRRONIUM
     Indication: ANTIBIOTIC THERAPY
     Dosage: 4 UG/KG, UNK
     Route: 042
  6. ROCURONIUM [Concomitant]
     Active Substance: ROCURONIUM BROMIDE
     Dosage: 0.8 MG/KG, UNK
     Route: 042
  7. MIDAZOLAM HYDROCHLORIDE. [Concomitant]
     Active Substance: MIDAZOLAM HYDROCHLORIDE
     Indication: PREMEDICATION
     Dosage: 0.05 MG/KG, UNK
     Route: 042
  8. PROPOFOL. [Concomitant]
     Active Substance: PROPOFOL
     Indication: INDUCTION OF ANAESTHESIA
     Dosage: 1.5 MG/KG, UNK
     Route: 042
  9. ATROPINE. [Suspect]
     Active Substance: ATROPINE
     Dosage: 0.01 MG/KG, UNK
     Route: 042

REACTIONS (1)
  - Drug ineffective [Recovered/Resolved]
